FAERS Safety Report 26093126 (Version 3)
Quarter: 2025Q4

REPORT INFORMATION
  Report Type: Report from Study
  Country: US (occurrence: US)
  Receive Date: 20251126
  Receipt Date: 20251231
  Transmission Date: 20260118
  Serious: Yes (Other)
  Sender: MALLINCKRODT
  Company Number: US-MALLINCKRODT-MNK202507440

PATIENT
  Age: 68 Year
  Sex: Male

DRUGS (1)
  1. CORTICOTROPIN [Suspect]
     Active Substance: CORTICOTROPIN
     Indication: Ulcerative keratitis
     Route: 058
     Dates: start: 202502

REACTIONS (1)
  - Drug hypersensitivity [Not Recovered/Not Resolved]

NARRATIVE: CASE EVENT DATE: 20250101
